FAERS Safety Report 23387886 (Version 1)
Quarter: 2024Q1

REPORT INFORMATION
  Report Type: Spontaneous
  Country: US (occurrence: None)
  Receive Date: 20240109
  Receipt Date: 20240109
  Transmission Date: 20240410
  Serious: Yes (Hospitalization)
  Sender: FDA-Public Use
  Company Number: None

PATIENT
  Sex: Male

DRUGS (2)
  1. ZOLADEX [Suspect]
     Active Substance: GOSERELIN ACETATE
     Indication: Prostate cancer
     Dosage: OTHER FREQUENCY : EVERY 90 DAYS;?
     Route: 058
     Dates: start: 20171108
  2. ZOLADEX [Suspect]
     Active Substance: GOSERELIN ACETATE
     Dosage: OTHER FREQUENCY : EVERY 90 DAYS;?
     Route: 058

REACTIONS (1)
  - Hospitalisation [None]
